FAERS Safety Report 15984609 (Version 1)
Quarter: 2019Q1

REPORT INFORMATION
  Report Type: Spontaneous
  Country: US (occurrence: US)
  Receive Date: 20190219
  Receipt Date: 20190219
  Transmission Date: 20190418
  Serious: Yes (Hospitalization)
  Sender: FDA-Public Use
  Company Number: None

PATIENT
  Age: 61 Year
  Sex: Male

DRUGS (6)
  1. METHOTREXATE INJ 1GM/40ML [Concomitant]
  2. VITAMINS + TAB MINERALS [Concomitant]
  3. HUMIRA [Suspect]
     Active Substance: ADALIMUMAB
     Indication: RHEUMATOID ARTHRITIS
     Dosage: ?          OTHER FREQUENCY:EVERY TWO WEEKS;?
     Route: 058
     Dates: start: 20180111
  4. PLAQUENIL [Concomitant]
     Active Substance: HYDROXYCHLOROQUINE SULFATE
  5. FISH OIL CAP 1000MG [Concomitant]
  6. FOLIC ACID TAB 1MG [Concomitant]

REACTIONS (2)
  - Product dose omission [None]
  - Hernia [None]

NARRATIVE: CASE EVENT DATE: 20190213
